FAERS Safety Report 5373722-6 (Version None)
Quarter: 2007Q2

REPORT INFORMATION
  Report Type: 
  Country: None (occurrence: None)
  Receive Date: 20070626
  Receipt Date: 20070412
  Transmission Date: 20071010
  Serious: No
  Sender: FDA-Public Use
  Company Number: WAES 0702USA03463

PATIENT
  Age: 73 Year
  Sex: Male

DRUGS (5)
  1. JANUVIA [Suspect]
     Indication: DIABETES MELLITUS NON-INSULIN-DEPENDENT
     Dosage: 100 MG/DAILY/PO
     Route: 048
     Dates: start: 20070202, end: 20070216
  2. AMARYL [Concomitant]
  3. COREG [Concomitant]
  4. VITRON-C [Concomitant]
  5. ZESTRIL [Concomitant]

REACTIONS (3)
  - FLUID RETENTION [None]
  - VISION BLURRED [None]
  - WEIGHT INCREASED [None]
